FAERS Safety Report 7610666-0 (Version None)
Quarter: 2011Q3

REPORT INFORMATION
  Report Type: 
  Country: None (occurrence: None)
  Receive Date: 20110715
  Receipt Date: 20110705
  Transmission Date: 20111222
  Serious: Yes (Other)
  Sender: FDA-Public Use
  Company Number: US-BAYER-2011-008324

PATIENT
  Sex: Female
  Weight: 117.46 kg

DRUGS (5)
  1. DROSPIRENONE AND ETHINYL ESTRADIOL [Suspect]
     Indication: ACNE
  2. OMEPRAZOLE [Concomitant]
  3. LEVOTHYROXINE [Concomitant]
     Dosage: 75 UNK, UNK
  4. YAZ [Suspect]
     Indication: ACNE
  5. YASMIN [Suspect]
     Indication: ACNE

REACTIONS (6)
  - GALLBLADDER DISORDER [None]
  - MALAISE [None]
  - CHOLECYSTITIS CHRONIC [None]
  - PAIN [None]
  - VOMITING [None]
  - BILIARY DYSKINESIA [None]
